FAERS Safety Report 8528765-8 (Version None)
Quarter: 2012Q3

REPORT INFORMATION
  Report Type: 
  Country: None (occurrence: None)
  Receive Date: 20120723
  Receipt Date: 20120717
  Transmission Date: 20120928
  Serious: Yes (Hospitalization)
  Sender: FDA-Public Use
  Company Number: US-AMGEN-USASP2012044539

PATIENT
  Sex: Female

DRUGS (1)
  1. ENBREL [Suspect]
     Indication: RHEUMATOID ARTHRITIS
     Dosage: 25 MG, QWK
     Dates: start: 19980909, end: 20120702

REACTIONS (9)
  - DYSPHONIA [None]
  - LUNG DISORDER [None]
  - INSOMNIA [None]
  - INCREASED UPPER AIRWAY SECRETION [None]
  - COUGH [None]
  - ARTHRALGIA [None]
  - KNEE DEFORMITY [None]
  - RHEUMATOID ARTHRITIS [None]
  - HAND DEFORMITY [None]
